FAERS Safety Report 14354218 (Version 1)
Quarter: 2018Q1

REPORT INFORMATION
  Report Type: Spontaneous
  Country: FR (occurrence: FR)
  Receive Date: 20180105
  Receipt Date: 20180105
  Transmission Date: 20180509
  Serious: Yes (Hospitalization)
  Sender: FDA-Public Use
  Company Number: FR-CONCORDIA PHARMACEUTICALS INC.-E2B_00009326

PATIENT
  Age: 94 Year
  Sex: Female
  Weight: 56 kg

DRUGS (7)
  1. TAREG 160 MG, COMPRIM? PELLICUL? [Concomitant]
  2. AMOXICILLINE [Suspect]
     Active Substance: AMOXICILLIN
     Indication: BRONCHITIS
     Route: 048
     Dates: start: 20171113, end: 20171117
  3. COUMADINE [Suspect]
     Active Substance: WARFARIN SODIUM
     Indication: DEEP VEIN THROMBOSIS
     Route: 048
     Dates: start: 201708, end: 20171117
  4. NORSET [Concomitant]
     Active Substance: MIRTAZAPINE
  5. LASILIX FAIBLE 20 MG, COMPRIME [Concomitant]
  6. ATARAX 25 MG, COMPRIM? PELLICUL? S?CABLE [Concomitant]
  7. PREDNISOLONE. [Suspect]
     Active Substance: PREDNISOLONE
     Indication: BRONCHITIS
     Route: 048
     Dates: start: 20171113, end: 20171117

REACTIONS (2)
  - Potentiating drug interaction [Recovered/Resolved]
  - International normalised ratio increased [Recovered/Resolved]

NARRATIVE: CASE EVENT DATE: 20171113
